FAERS Safety Report 6909701-4 (Version None)
Quarter: 2010Q3

REPORT INFORMATION
  Report Type: 
  Country: None (occurrence: None)
  Receive Date: 20100805
  Receipt Date: 20100723
  Transmission Date: 20110219
  Serious: Yes (Hospitalization)
  Sender: FDA-Public Use
  Company Number: US-ELI_LILLY_AND_COMPANY-US201007006153

PATIENT
  Sex: Female
  Weight: 50.794 kg

DRUGS (7)
  1. GEMCITABINE HCL [Suspect]
     Indication: PANCREATIC CARCINOMA
     Dosage: 1102 MG, OTHER
     Route: 042
     Dates: start: 20100311, end: 20100422
  2. TARCEVA [Suspect]
     Indication: PANCREATIC CARCINOMA
     Dosage: 100 MG, DAILY (1/D)
     Route: 048
     Dates: start: 20100311
  3. PACLITAXEL [Suspect]
     Indication: PANCREATIC CARCINOMA
     Dosage: 184 MG, OTHER
     Route: 042
     Dates: start: 20100311, end: 20100422
  4. IMODIUM [Concomitant]
  5. NADOLOL [Concomitant]
  6. DOXYCYCLINE [Concomitant]
  7. WESTCORT [Concomitant]

REACTIONS (5)
  - DEHYDRATION [None]
  - HYPOTENSION [None]
  - NEUTROPHIL COUNT DECREASED [None]
  - SEPSIS [None]
  - URINARY TRACT INFECTION [None]
